FAERS Safety Report 6484737-9 (Version None)
Quarter: 2009Q4

REPORT INFORMATION
  Report Type: 
  Country: None (occurrence: None)
  Receive Date: 20091204
  Receipt Date: 20091120
  Transmission Date: 20100525
  Serious: Yes (Hospitalization)
  Sender: FDA-Public Use
  Company Number: 8054408

PATIENT
  Age: 58 Year
  Sex: Female

DRUGS (7)
  1. CERTOLIZUMAB PEGOL [Suspect]
     Indication: RHEUMATOID ARTHRITIS
     Dosage: 200 MG 1/2W SC
     Route: 058
     Dates: start: 20050801, end: 20060717
  2. CERTOLIZUMAB PEGOL [Suspect]
     Indication: RHEUMATOID ARTHRITIS
     Dosage: 400 MG 1/2 SW SC
     Route: 058
     Dates: start: 20060802, end: 20071204
  3. CERTOLIZUMAB PEGOL [Suspect]
     Indication: RHEUMATOID ARTHRITIS
     Dosage: 200 MG 1/2W SC
     Route: 058
     Dates: start: 20071218, end: 20091102
  4. DICLOFENAC [Concomitant]
  5. HYPOTHIAZID [Concomitant]
  6. PANANGIN [Concomitant]
  7. ENALAPRIL MALEATE [Concomitant]

REACTIONS (1)
  - SINUSITIS [None]
